FAERS Safety Report 7257975-5 (Version None)
Quarter: 2011Q1

REPORT INFORMATION
  Report Type: 
  Country: None (occurrence: None)
  Receive Date: 20110129
  Receipt Date: 20100612
  Transmission Date: 20110831
  Serious: No
  Sender: FDA-Public Use
  Company Number: US-ABBOTT-10P-163-0651387-00

PATIENT
  Age: 20 Year
  Sex: Female

DRUGS (3)
  1. HUMIRA [Suspect]
     Dosage: ONCE
     Dates: start: 20100612, end: 20100612
  2. HUMIRA [Suspect]
  3. HUMIRA [Suspect]
     Indication: CROHN'S DISEASE
     Dates: end: 20100401

REACTIONS (2)
  - STAPHYLOCOCCAL INFECTION [None]
  - INJECTION SITE HAEMORRHAGE [None]
